FAERS Safety Report 5530524-5 (Version None)
Quarter: 2007Q4

REPORT INFORMATION
  Report Type: 
  Country: None (occurrence: None)
  Receive Date: 20071130
  Receipt Date: 20071120
  Transmission Date: 20080405
  Serious: Yes (Death, Hospitalization)
  Sender: FDA-Public Use
  Company Number: ES-AVENTIS-200718445GDDC

PATIENT
  Age: 72 Year
  Sex: Female

DRUGS (7)
  1. ARAVA [Suspect]
     Indication: RHEUMATOID ARTHRITIS
     Route: 048
     Dates: start: 20070301, end: 20070720
  2. CAPTOPRIL [Concomitant]
     Dosage: DOSE: UNK
  3. ORFIDAL [Concomitant]
  4. OMEPRAZOLE [Concomitant]
  5. NAPROXEN [Concomitant]
     Dosage: DOSE: UNK
  6. EQUISETUM ARVENSE [Concomitant]
     Dosage: DOSE: UNK
  7. HYDROCHLOROTHIAZIDE [Concomitant]
     Dosage: DOSE: UNK

REACTIONS (8)
  - ANGIOEDEMA [None]
  - ENCEPHALOPATHY [None]
  - HEPATOCELLULAR DAMAGE [None]
  - MULTI-ORGAN FAILURE [None]
  - PYREXIA [None]
  - SHOCK [None]
  - STEVENS-JOHNSON SYNDROME [None]
  - TRANSAMINASES INCREASED [None]
